FAERS Safety Report 8888936 (Version 1)
Quarter: 2012Q4

REPORT INFORMATION
  Report Type: 
  Country: US (occurrence: US)
  Receive Date: 20121106
  Receipt Date: 20121106
  Transmission Date: 20130627
  Serious: Yes (Other)
  Sender: FDA-Public Use
  Company Number: PHEH2012US014576

PATIENT
  Age: 42 Year
  Sex: Male
  Weight: 78.01 kg

DRUGS (1)
  1. GILENYA [Suspect]
     Indication: MULTIPLE SCLEROSIS
     Dosage: 0.5 mg, QD
     Route: 048
     Dates: start: 20120720, end: 20120720

REACTIONS (2)
  - Heart rate increased [Recovered/Resolved]
  - Bradycardia [Recovered/Resolved]
